FAERS Safety Report 17468496 (Version 7)
Quarter: 2020Q3

REPORT INFORMATION
  Report Type: Report from Study
  Country: US (occurrence: US)
  Receive Date: 20200227
  Receipt Date: 20200707
  Transmission Date: 20201102
  Serious: Yes (Other)
  Sender: FDA-Public Use
  Company Number: NVSC2020US055590

PATIENT
  Age: 71 Year
  Sex: Female

DRUGS (1)
  1. ENTRESTO [Suspect]
     Active Substance: SACUBITRIL\VALSARTAN
     Indication: CARDIAC FAILURE CONGESTIVE
     Dosage: UNK
     Route: 065
     Dates: start: 202001

REACTIONS (3)
  - Fatigue [Not Recovered/Not Resolved]
  - Nasopharyngitis [Recovering/Resolving]
  - Carbon monoxide poisoning [Recovering/Resolving]

NARRATIVE: CASE EVENT DATE: 202002
